FAERS Safety Report 19975755 (Version 4)
Quarter: 2022Q1

REPORT INFORMATION
  Report Type: Report from Study
  Country: US (occurrence: US)
  Receive Date: 20211021
  Receipt Date: 20220113
  Transmission Date: 20220423
  Serious: Yes (Death, Hospitalization, Other)
  Sender: FDA-Public Use
  Company Number: US-ACADIA PHARMACEUTICALS INC.-ACA-2021-PIM-003451

PATIENT
  Sex: Female
  Weight: 57 kg

DRUGS (17)
  1. NUPLAZID [Suspect]
     Active Substance: PIMAVANSERIN TARTRATE
     Indication: Hallucination
     Dosage: 34 MILLIGRAM, QD
     Route: 065
     Dates: start: 20210821, end: 202110
  2. NUPLAZID [Suspect]
     Active Substance: PIMAVANSERIN TARTRATE
     Indication: Delusion
  3. NUPLAZID [Suspect]
     Active Substance: PIMAVANSERIN TARTRATE
     Indication: Parkinson^s disease psychosis
  4. GOCOVRI [Suspect]
     Active Substance: AMANTADINE
     Indication: Dyskinesia
     Dosage: 68.5 MG QD AT BEDTIME
     Route: 048
     Dates: start: 20210808, end: 20210814
  5. GOCOVRI [Suspect]
     Active Substance: AMANTADINE
     Dosage: 137 MILLIGRAM, QD AT BEDTIME
     Route: 048
     Dates: start: 20210815, end: 20210821
  6. GOCOVRI [Suspect]
     Active Substance: AMANTADINE
     Dosage: 205.5 MILLIGRAM, QD AT BEDTIME
     Route: 048
     Dates: start: 20210822, end: 2021
  7. GOCOVRI [Suspect]
     Active Substance: AMANTADINE
     Dosage: 274 MILLIGRAM, QD AT BEDTIME
     Route: 048
     Dates: start: 2021, end: 20210907
  8. GOCOVRI [Suspect]
     Active Substance: AMANTADINE
     Dosage: 137 MILLIGRAM, QD
     Route: 048
     Dates: start: 20210908, end: 2021
  9. LEVODOPA [Concomitant]
     Active Substance: LEVODOPA
  10. METOPROLOL [Concomitant]
     Active Substance: METOPROLOL
  11. ATORVASTATIN [Concomitant]
     Active Substance: ATORVASTATIN
  12. PANTOPRAZOLE [Concomitant]
     Active Substance: PANTOPRAZOLE
  13. ESCITALOPRAM [Concomitant]
     Active Substance: ESCITALOPRAM OXALATE
  14. NAPROXEN [Concomitant]
     Active Substance: NAPROXEN
  15. HYDROCHLOROTHIAZIDE\LISINOPRIL [Concomitant]
     Active Substance: HYDROCHLOROTHIAZIDE\LISINOPRIL
  16. CLONAZEPAM [Concomitant]
     Active Substance: CLONAZEPAM
  17. GABAPENTIN [Concomitant]
     Active Substance: GABAPENTIN

REACTIONS (7)
  - Myocardial infarction [Fatal]
  - Cardiac disorder [Fatal]
  - Renal impairment [Unknown]
  - Electrolyte imbalance [Unknown]
  - Dysarthria [Not Recovered/Not Resolved]
  - Swelling face [Unknown]
  - Peripheral swelling [Unknown]

NARRATIVE: CASE EVENT DATE: 20210101
